FAERS Safety Report 4566366-7 (Version None)
Quarter: 2005Q1

REPORT INFORMATION
  Report Type: 
  Country: None (occurrence: None)
  Receive Date: 20050126
  Receipt Date: 20050126
  Transmission Date: 20050727
  Serious: Yes (Other)
  Sender: FDA-Public Use
  Company Number: None

PATIENT
  Age: 87 Year
  Sex: Male
  Weight: 60.3 kg

DRUGS (10)
  1. TERAZOSIN [Suspect]
  2. TAMSULOSIN HCL [Concomitant]
  3. DILTIAZEM HCL [Concomitant]
  4. OMEPRAZOLE [Concomitant]
  5. COUMADIN [Concomitant]
  6. IPATROPIUM BROMIDE [Concomitant]
  7. NUTRITION SUPL RESOURCE/VAN LIQUID [Concomitant]
  8. FUROSEMIDE [Concomitant]
  9. DEPENDS U/WEAR SM/MED SUPER ABC #19166 [Concomitant]
  10. UNDERPAD BED LARGE EXTRA ABSORBANT [Concomitant]

REACTIONS (1)
  - OEDEMA [None]
